FAERS Safety Report 10174626 (Version 1)
Quarter: 2014Q2

REPORT INFORMATION
  Report Type: Spontaneous
  Country: US (occurrence: None)
  Receive Date: 20140416
  Receipt Date: 20140416
  Transmission Date: 20141212
  Serious: Yes (Hospitalization)
  Sender: FDA-Public Use
  Company Number: 163-POMAL-13113319

PATIENT
  Age: 83 Year
  Sex: Male
  Weight: 71.7 kg

DRUGS (5)
  1. POMALYST [Suspect]
     Indication: PLASMA CELL MYELOMA
     Dosage: 21 IN 28 D
     Route: 048
     Dates: start: 201303
  2. ASPIRIN (ACETYLSALICYLIC ACID) [Concomitant]
  3. PERCOCET (OXYCOCET) [Concomitant]
  4. ACETAMINOPHEN (PARACETAMOL) [Concomitant]
  5. LIDOCAINE (LIDOCAINE) [Concomitant]

REACTIONS (2)
  - Postoperative wound infection [None]
  - Peripheral artery bypass [None]
